FAERS Safety Report 4359001-4 (Version None)
Quarter: 2004Q2

REPORT INFORMATION
  Report Type: 
  Country: None (occurrence: None)
  Receive Date: 20040512
  Receipt Date: 20040402
  Transmission Date: 20050107
  Serious: Yes (Other)
  Sender: FDA-Public Use
  Company Number: BE-JNJFOC-20040204786

PATIENT
  Sex: Female

DRUGS (4)
  1. CISAPIRIDE (CISAPIRIDE) TABLETS [Suspect]
     Indication: IMPAIRED GASTRIC EMPTYING
     Dosage: 10 MG, 3 IN 1 DAY, ORAL
     Route: 048
     Dates: start: 19961201, end: 20040217
  2. ASAFLOW (ACETYLSALICYLIC ACID) UNKNOWN [Concomitant]
  3. EMCORETIC (BISELECT) TABLETS [Concomitant]
  4. DAKAR (LANSOPRAZOLE) UNKNOWN [Concomitant]

REACTIONS (1)
  - ELECTROCARDIOGRAM QT PROLONGED [None]
